FAERS Safety Report 4975734-0 (Version None)
Quarter: 2006Q2

REPORT INFORMATION
  Report Type: 
  Country: None (occurrence: None)
  Receive Date: 20060411
  Receipt Date: 20060328
  Transmission Date: 20061013
  Serious: Yes (Other)
  Sender: FDA-Public Use
  Company Number: US200604000147

PATIENT
  Sex: Female

DRUGS (2)
  1. SYMBYAX [Suspect]
     Dosage: D/F
     Dates: start: 20051012
  2. SEROQUEL/UNK/(QUETIAPINE FUMARATE) [Concomitant]

REACTIONS (1)
  - THYROID NEOPLASM [None]
